FAERS Safety Report 25202324 (Version 1)
Quarter: 2025Q2

REPORT INFORMATION
  Report Type: Spontaneous
  Country: GB (occurrence: GB)
  Receive Date: 20250416
  Receipt Date: 20250416
  Transmission Date: 20250716
  Serious: Yes (Other)
  Sender: CIPLA
  Company Number: GB-MHRA-TPP19341339C12900624YC1743523282205

PATIENT

DRUGS (6)
  1. FINASTERIDE [Suspect]
     Active Substance: FINASTERIDE
     Indication: Ill-defined disorder
     Dosage: 5 MILLIGRAM, QD
     Route: 065
     Dates: start: 20230224
  2. FOLIC ACID [Concomitant]
     Active Substance: FOLIC ACID
     Indication: Ill-defined disorder
     Route: 065
     Dates: start: 20171121
  3. METHOTREXATE [Concomitant]
     Active Substance: METHOTREXATE
     Indication: Ill-defined disorder
     Dosage: 12.5 MILLIGRAM, QWK (12.5 MILLIGRAM, (12.5MG (FIVE TABLETS) ONCE A WEEK ON A SATURDAY)
     Route: 065
     Dates: start: 20180815
  4. EPIMAX EXCETRA [Concomitant]
     Indication: Ill-defined disorder
     Route: 065
     Dates: start: 20190821
  5. TAMSULOSIN HYDROCHLORIDE [Concomitant]
     Active Substance: TAMSULOSIN HYDROCHLORIDE
     Indication: Ill-defined disorder
     Dosage: 1 DOSAGE FORM, QD(TAKE ONE CAPSULE DAILY TO HELP BLADDER SYMPTOMS)
     Route: 065
     Dates: start: 20220511
  6. SULFASALAZINE [Concomitant]
     Active Substance: SULFASALAZINE
     Indication: Ill-defined disorder
     Dosage: 2 DOSAGE FORM, BID (TAKE TWO TWICE A DAY)
     Route: 065
     Dates: start: 20230505

REACTIONS (5)
  - Affect lability [Unknown]
  - Personality change [Unknown]
  - Irritability [Unknown]
  - Anger [Unknown]
  - Tearfulness [Unknown]
